FAERS Safety Report 11416573 (Version 1)
Quarter: 2015Q3

REPORT INFORMATION
  Report Type: Spontaneous
  Country: US (occurrence: US)
  Receive Date: 20150825
  Receipt Date: 20150825
  Transmission Date: 20151125
  Serious: Yes (Other)
  Sender: FDA-Public Use
  Company Number: PHHY2015US101783

PATIENT
  Age: 38 Year
  Sex: Male
  Weight: 67.9 kg

DRUGS (8)
  1. HYDROMORPHONE [Suspect]
     Active Substance: HYDROMORPHONE
     Indication: PAIN
     Dosage: 20 MG, PRN (PER 1 HOUR AS NEEDED)
     Route: 042
     Dates: start: 20150317, end: 20150328
  2. DAPTOMYCIN. [Suspect]
     Active Substance: DAPTOMYCIN
     Indication: OSTEOMYELITIS
     Dosage: 400 MG, QD
     Route: 042
     Dates: start: 20150320, end: 20150409
  3. FAMOTIDINE. [Suspect]
     Active Substance: FAMOTIDINE
     Indication: PAIN
     Dosage: 20 MG, Q12H
     Route: 042
     Dates: start: 20150324, end: 20150405
  4. ONDANSETRON [Suspect]
     Active Substance: ONDANSETRON
     Indication: NAUSEA
     Dosage: 4 MG, PRN (EVERY 6 HOURS AS NEEDED)
     Route: 042
     Dates: start: 20150317, end: 20150417
  5. LORATADINE. [Suspect]
     Active Substance: LORATADINE
     Indication: HYPERSENSITIVITY
     Dosage: 10 MG, QD
     Route: 048
     Dates: start: 20150324, end: 20150417
  6. DILAUDID [Concomitant]
     Active Substance: HYDROMORPHONE HYDROCHLORIDE
     Indication: PRODUCT USED FOR UNKNOWN INDICATION
     Route: 065
  7. HEPARIN [Suspect]
     Active Substance: HEPARIN SODIUM
     Indication: THROMBOSIS PROPHYLAXIS
     Dosage: 5000 U, TID
     Route: 058
     Dates: start: 20150317, end: 20150417
  8. MORPHINE [Suspect]
     Active Substance: MORPHINE
     Indication: PAIN
     Dosage: 20 MG, Q12H
     Route: 048
     Dates: start: 20150320, end: 20150417

REACTIONS (4)
  - Generalised tonic-clonic seizure [Recovered/Resolved]
  - Hypomagnesaemia [Unknown]
  - Hyperhidrosis [Unknown]
  - Vomiting [Unknown]

NARRATIVE: CASE EVENT DATE: 20150328
